FAERS Safety Report 9420512 (Version 1)
Quarter: 2013Q3

REPORT INFORMATION
  Report Type: Spontaneous
  Country: US (occurrence: US)
  Receive Date: 20130725
  Receipt Date: 20130725
  Transmission Date: 20140515
  Serious: No
  Sender: FDA-Public Use
  Company Number: US-ABBOTT-13P-163-1053732-00

PATIENT
  Age: 78 Year
  Sex: Female
  Weight: 78.09 kg

DRUGS (5)
  1. SYNTHROID [Suspect]
     Indication: HYPOTHYROIDISM
     Dates: start: 201301, end: 20130217
  2. SYNTHROID [Suspect]
     Dosage: 88 MICROGRAM TABLET ONE DAY FOLLOWED BY 100 MICROGRAM TABLET THE NEXT.
     Dates: start: 201301
  3. SYNTHROID [Suspect]
     Dosage: 88 MICROGRAM TABLET ONE DAY FOLLOWED BY 100 MICROGRAM TABLET THE NEXT.
     Dates: start: 20130218
  4. UNKNOWN STATIN [Concomitant]
     Indication: BLOOD CHOLESTEROL INCREASED
  5. ASPIRIN [Concomitant]
     Indication: CARDIOVASCULAR EVENT PROPHYLAXIS

REACTIONS (3)
  - Waist circumference increased [Not Recovered/Not Resolved]
  - Frequent bowel movements [Recovering/Resolving]
  - Unevaluable event [Recovering/Resolving]
